FAERS Safety Report 15879878 (Version 1)
Quarter: 2019Q1

REPORT INFORMATION
  Report Type: Spontaneous
  Country: US (occurrence: US)
  Receive Date: 20190126
  Receipt Date: 20190126
  Transmission Date: 20190417
  Serious: Yes (Disabling, Other)
  Sender: FDA-Public Use
  Company Number: None

PATIENT
  Age: 22 Year
  Sex: Male
  Weight: 67 kg

DRUGS (1)
  1. FINASTERIDE 1MG, 1MG MG [Suspect]
     Active Substance: FINASTERIDE
     Indication: ANDROGENETIC ALOPECIA
     Dosage: ?          QUANTITY:1 CAPSULE(S);?
     Route: 048
     Dates: start: 20180920

REACTIONS (6)
  - Arrhythmia [None]
  - Erectile dysfunction [None]
  - Sleep disorder [None]
  - Loss of libido [None]
  - Panic attack [None]
  - Breast tenderness [None]

NARRATIVE: CASE EVENT DATE: 20190103
